FAERS Safety Report 6710930-3 (Version None)
Quarter: 2010Q2

REPORT INFORMATION
  Report Type: 
  Country: None (occurrence: None)
  Receive Date: 20100505
  Receipt Date: 20100427
  Transmission Date: 20101027
  Serious: No
  Sender: FDA-Public Use
  Company Number: 2010BI000786

PATIENT
  Sex: Female

DRUGS (5)
  1. TYSABRI [Suspect]
     Indication: MULTIPLE SCLEROSIS
     Route: 042
     Dates: start: 20091207
  2. AMPYRA [Concomitant]
     Indication: FATIGUE
  3. GABAPENTIN [Concomitant]
     Indication: HYPOAESTHESIA
  4. GABAPENTIN [Concomitant]
     Indication: PARAESTHESIA
  5. LANSOPRAZOLE [Concomitant]
     Indication: GASTROOESOPHAGEAL REFLUX DISEASE

REACTIONS (9)
  - ALOPECIA [None]
  - BLOOD CHOLESTEROL INCREASED [None]
  - FEELING HOT [None]
  - GASTROOESOPHAGEAL REFLUX DISEASE [None]
  - NASOPHARYNGITIS [None]
  - NAUSEA [None]
  - RESIDUAL URINE [None]
  - SEASONAL ALLERGY [None]
  - URINARY HESITATION [None]
